FAERS Safety Report 13623471 (Version 2)
Quarter: 2017Q2

REPORT INFORMATION
  Report Type: Spontaneous
  Country: UA (occurrence: UA)
  Receive Date: 20170608
  Receipt Date: 20170609
  Transmission Date: 20170830
  Serious: Yes (Hospitalization, Other)
  Sender: FDA-Public Use
  Company Number: UA-SUN PHARMACEUTICAL INDUSTRIES LTD-2017R1-142477

PATIENT
  Age: 46 Year
  Sex: Male

DRUGS (7)
  1. DOXORUBICIN [Suspect]
     Active Substance: DOXORUBICIN
     Indication: HODGKIN^S DISEASE
     Dosage: 6 COURSES FOR 14 DAYS EACH
     Route: 065
  2. BLEOMYCIN [Suspect]
     Active Substance: BLEOMYCIN SULFATE
     Indication: HODGKIN^S DISEASE
     Dosage: 6 COURSES FOR 14 DAYS EACH
     Route: 065
  3. PREDNISONE. [Suspect]
     Active Substance: PREDNISONE
     Indication: HODGKIN^S DISEASE
     Dosage: 6 COURSES FOR 14 DAYS EACH
     Route: 065
  4. VINCRISTINE [Suspect]
     Active Substance: VINCRISTINE
     Indication: HODGKIN^S DISEASE
     Dosage: 6 COURSES FOR 14 DAYS EACH
     Route: 065
  5. CYCLOPHOSPHAMIDE. [Suspect]
     Active Substance: CYCLOPHOSPHAMIDE
     Indication: HODGKIN^S DISEASE
     Dosage: 6 COURSES FOR 14 DAYS EACH
     Route: 065
  6. PROCARBAZINE [Suspect]
     Active Substance: PROCARBAZINE
     Indication: HODGKIN^S DISEASE
     Dosage: 6 COURSES FOR 14 DAYS EACH
     Route: 065
  7. ETOPOSIDE. [Suspect]
     Active Substance: ETOPOSIDE
     Indication: HODGKIN^S DISEASE
     Dosage: 6 COURSES FOR 14 DAYS EACH
     Route: 065

REACTIONS (7)
  - Palpitations [Recovering/Resolving]
  - Peripheral sensory neuropathy [Recovering/Resolving]
  - Asthenia [Recovering/Resolving]
  - Cardiac failure [Recovered/Resolved]
  - Neurotoxicity [Recovering/Resolving]
  - Angina pectoris [Recovering/Resolving]
  - Dyspnoea [Recovering/Resolving]
